FAERS Safety Report 5630426-X (Version None)
Quarter: 2008Q1

REPORT INFORMATION
  Report Type: 
  Country: None (occurrence: None)
  Receive Date: 20080219
  Receipt Date: 20080219
  Transmission Date: 20080703
  Serious: Yes (Life-Threatening, Hospitalization, Disabling)
  Sender: FDA-Public Use
  Company Number: None

PATIENT
  Age: 64 Year
  Sex: Female

DRUGS (23)
  1. HEPARIN [Suspect]
     Indication: ANTICOAGULANT THERAPY
     Dosage: 5,450 UNITS BOLUS IV AT 2100
     Route: 042
     Dates: start: 20080212
  2. PROPAFENONE HCL [Suspect]
     Indication: ATRIAL FIBRILLATION
     Dosage: 600 MG X1 PO AT 0230
     Route: 048
     Dates: start: 20080212
  3. HEPARIN [Suspect]
     Indication: ANTICOAGULANT THERAPY
     Dosage: 5000 UNITS X1 IV AT 03:57
     Route: 042
     Dates: start: 20080213
  4. HEPARIN [Suspect]
     Dosage: 1100 UNITS PER HOUR IV 2-12 AT 2100 TO 2-13 AT 0140
     Route: 042
     Dates: start: 20080212, end: 20080213
  5. NITROGLYCERIN [Suspect]
     Indication: ANGINA PECTORIS
     Dosage: ONE PATCH Q24HR PATCH 2-12 2249 - 2-13-08 AT 0155
     Dates: start: 20080212, end: 20080213
  6. K+ SUPP [Concomitant]
  7. FUROSEMIDE [Concomitant]
  8. COREG [Concomitant]
  9. PLAVIX [Concomitant]
  10. SPIRONOLACTONE [Concomitant]
  11. LIPITOR [Concomitant]
  12. DIGITEK [Concomitant]
  13. LISINOPRIL [Concomitant]
  14. LANTUS [Concomitant]
  15. HUMALOG [Concomitant]
  16. ASPIRIN [Concomitant]
  17. ASPIRIN [Concomitant]
  18. PLAVIX [Concomitant]
  19. COREG [Concomitant]
  20. PRAVASTATIN [Concomitant]
  21. SPIRONOLACTONE [Concomitant]
  22. LISINOPRIL [Concomitant]
  23. DIGOXIN [Concomitant]

REACTIONS (20)
  - ASTHENIA [None]
  - BRADYCARDIA [None]
  - CARDIAC ARREST [None]
  - COLD SWEAT [None]
  - DIZZINESS [None]
  - DYSPNOEA [None]
  - DYSURIA [None]
  - HYPERHIDROSIS [None]
  - HYPOPERFUSION [None]
  - HYPOTENSION [None]
  - ISCHAEMIA [None]
  - LEUKOCYTOSIS [None]
  - LOSS OF CONSCIOUSNESS [None]
  - METABOLIC ACIDOSIS [None]
  - METABOLIC DISORDER [None]
  - NAUSEA [None]
  - PULMONARY OEDEMA [None]
  - RENAL FAILURE [None]
  - RENAL TUBULAR NECROSIS [None]
  - VENTRICULAR TACHYCARDIA [None]
